FAERS Safety Report 8491551-1 (Version None)
Quarter: 2012Q3

REPORT INFORMATION
  Report Type: 
  Country: None (occurrence: None)
  Receive Date: 20120706
  Receipt Date: 20120628
  Transmission Date: 20120928
  Serious: Yes (Other)
  Sender: FDA-Public Use
  Company Number: US-JNJFOC-20120614706

PATIENT

DRUGS (2)
  1. XARELTO [Suspect]
     Indication: ATRIAL FIBRILLATION
     Route: 048
  2. XARELTO [Suspect]
     Indication: CEREBROVASCULAR ACCIDENT PROPHYLAXIS
     Route: 048

REACTIONS (5)
  - ABDOMINAL DISCOMFORT [None]
  - HYPOAESTHESIA ORAL [None]
  - GASTROOESOPHAGEAL REFLUX DISEASE [None]
  - CEREBROVASCULAR ACCIDENT [None]
  - DYSPHAGIA [None]
